FAERS Safety Report 10046840 (Version 1)
Quarter: 2014Q1

REPORT INFORMATION
  Report Type: Spontaneous
  Country: DE (occurrence: DE)
  Receive Date: 20140331
  Receipt Date: 20140331
  Transmission Date: 20141002
  Serious: No
  Sender: FDA-Public Use
  Company Number: DE-ELI_LILLY_AND_COMPANY-DE201403005980

PATIENT
  Age: 82 Year
  Sex: Female

DRUGS (5)
  1. YENTREVE [Suspect]
     Indication: STRESS URINARY INCONTINENCE
     Dosage: 20 MG, UNK
     Route: 048
     Dates: start: 201312
  2. BISOPROLOL [Concomitant]
     Route: 065
  3. AMLODIPIN                          /00972401/ [Concomitant]
     Route: 065
  4. VALSARTAN [Concomitant]
     Route: 065
  5. METFORMIN [Concomitant]
     Route: 065

REACTIONS (2)
  - Renal function test abnormal [Not Recovered/Not Resolved]
  - Liver function test abnormal [Not Recovered/Not Resolved]
